FAERS Safety Report 12570066 (Version 1)
Quarter: 2016Q3

REPORT INFORMATION
  Report Type: Spontaneous
  Country: US (occurrence: US)
  Receive Date: 20160719
  Receipt Date: 20160719
  Transmission Date: 20161109
  Serious: No
  Sender: FDA-Public Use
  Company Number: US-TEVA-666017USA

PATIENT
  Age: 21 Year
  Sex: Female

DRUGS (1)
  1. ZECUITY [Suspect]
     Active Substance: SUMATRIPTAN SUCCINATE
     Indication: MIGRAINE
     Route: 062
     Dates: start: 20160602, end: 20160602

REACTIONS (6)
  - Application site discomfort [Unknown]
  - Application site pain [Not Recovered/Not Resolved]
  - Wrong technique in product usage process [Unknown]
  - Application site erythema [Not Recovered/Not Resolved]
  - Product physical issue [Unknown]
  - Application site paraesthesia [Unknown]

NARRATIVE: CASE EVENT DATE: 20160602
